FAERS Safety Report 6233659-7 (Version None)
Quarter: 2009Q2

REPORT INFORMATION
  Report Type: 
  Country: None (occurrence: None)
  Receive Date: 20090612
  Receipt Date: 20090528
  Transmission Date: 20091009
  Serious: Yes (Other)
  Sender: FDA-Public Use
  Company Number: 2009CD0133

PATIENT
  Sex: Male

DRUGS (1)
  1. CEDAX [Suspect]
     Indication: RESPIRATORY TRACT INFECTION
     Dosage: 153MG GRANULES, UNK
     Dates: start: 20081015, end: 20081015

REACTIONS (1)
  - LIP OEDEMA [None]
